FAERS Safety Report 7686059-7 (Version None)
Quarter: 2011Q3

REPORT INFORMATION
  Report Type: 
  Country: None (occurrence: None)
  Receive Date: 20110816
  Receipt Date: 20110811
  Transmission Date: 20111222
  Serious: No
  Sender: FDA-Public Use
  Company Number: US-PFIZER INC-2011186103

PATIENT

DRUGS (1)
  1. PROPRANOLOL HCL [Suspect]
     Dosage: UNK
     Route: 065

REACTIONS (3)
  - DIZZINESS [None]
  - DRUG INEFFECTIVE [None]
  - TREMOR [None]
